FAERS Safety Report 8473732-6 (Version None)
Quarter: 2012Q2

REPORT INFORMATION
  Report Type: 
  Country: None (occurrence: None)
  Receive Date: 20120628
  Receipt Date: 20111102
  Transmission Date: 20120825
  Serious: Yes (Other)
  Sender: FDA-Public Use
  Company Number: US-MYLANLABS-2011S1020847

PATIENT
  Age: 44 Year
  Sex: Female
  Weight: 55.79 kg

DRUGS (8)
  1. DIVALPROEX SODIUM EXTENDED RELEASE [Concomitant]
     Route: 048
  2. CLONAZEPAM [Concomitant]
     Route: 048
  3. CLOZAPINE [Suspect]
     Indication: BIPOLAR DISORDER
     Route: 048
     Dates: start: 20110709, end: 20110901
  4. DIVALPROEX SODIUM EXTENDED RELEASE [Concomitant]
     Route: 048
  5. CLOZAPINE [Suspect]
     Indication: SCHIZOAFFECTIVE DISORDER
     Route: 048
     Dates: start: 20110709, end: 20110901
  6. SEROQUEL [Concomitant]
     Route: 048
  7. LORAZEPAM [Concomitant]
     Indication: ANXIETY
     Route: 048
  8. MELOXICAM [Concomitant]

REACTIONS (1)
  - GRANULOCYTOPENIA [None]
